FAERS Safety Report 6566680-X (Version None)
Quarter: 2010Q1

REPORT INFORMATION
  Report Type: 
  Country: None (occurrence: None)
  Receive Date: 20100202
  Receipt Date: 20100120
  Transmission Date: 20100710
  Serious: Yes (Other)
  Sender: FDA-Public Use
  Company Number: US-ROCHE-682440

PATIENT

DRUGS (1)
  1. AVASTIN [Suspect]
     Route: 065

REACTIONS (1)
  - METASTASES TO LIVER [None]
